FAERS Safety Report 25981621 (Version 1)
Quarter: 2025Q4

REPORT INFORMATION
  Report Type: Report from Study
  Country: US (occurrence: US)
  Receive Date: 20251031
  Receipt Date: 20251031
  Transmission Date: 20260118
  Serious: Yes (Death, Other)
  Sender: TAKEDA
  Company Number: US-TAKEDA-2025TUS096251

PATIENT
  Age: 39 Year
  Sex: Female

DRUGS (1)
  1. FRUQUINTINIB [Suspect]
     Active Substance: FRUQUINTINIB
     Indication: Product used for unknown indication
     Dosage: 5 MILLIGRAM

REACTIONS (1)
  - Death [Fatal]

NARRATIVE: CASE EVENT DATE: 20251021
